FAERS Safety Report 20862663 (Version 2)
Quarter: 2022Q2

REPORT INFORMATION
  Report Type: Spontaneous
  Country: GB (occurrence: GB)
  Receive Date: 20220523
  Receipt Date: 20220525
  Transmission Date: 20220721
  Serious: Yes (Life-Threatening, Hospitalization, Disabling, Other)
  Sender: FDA-Public Use
  Company Number: GB-ORGANON-O2205GBR000856

PATIENT
  Age: 31 Year
  Sex: Female
  Weight: 63.5 kg

DRUGS (71)
  1. LORAZEPAM [Interacting]
     Active Substance: LORAZEPAM
     Indication: Sedation
     Dosage: UNK
     Route: 048
     Dates: start: 20110202, end: 20110410
  2. LORAZEPAM [Interacting]
     Active Substance: LORAZEPAM
     Dosage: 1 MG, 4 TIMES PER DAY
     Route: 048
     Dates: start: 20110224, end: 20110410
  3. LORAZEPAM [Interacting]
     Active Substance: LORAZEPAM
     Dosage: 1 MG, 4 TIMES PER DAY
     Route: 048
     Dates: start: 20110224, end: 20110410
  4. LORAZEPAM [Interacting]
     Active Substance: LORAZEPAM
     Dosage: 1 MILLIGRAM
     Route: 048
     Dates: start: 20110224, end: 20110410
  5. LORAZEPAM [Interacting]
     Active Substance: LORAZEPAM
     Dosage: 1 MG, 4 TIMES PER DAY
     Route: 048
     Dates: start: 20110224, end: 20110410
  6. LORAZEPAM [Interacting]
     Active Substance: LORAZEPAM
     Dosage: 4 MG
     Route: 048
     Dates: start: 20110224, end: 20110404
  7. LORAZEPAM [Interacting]
     Active Substance: LORAZEPAM
     Dosage: 1 MG, 4 TIMES PER DAY
     Route: 048
     Dates: start: 20110224, end: 20110410
  8. LORAZEPAM [Interacting]
     Active Substance: LORAZEPAM
     Dosage: 1 MG,
     Route: 048
     Dates: start: 20110523, end: 20110627
  9. LORAZEPAM [Interacting]
     Active Substance: LORAZEPAM
     Dosage: 1 MG, 4 TIMES PER DAY
     Route: 048
  10. LORAZEPAM [Interacting]
     Active Substance: LORAZEPAM
     Dosage: 4 MG, ONCE PER DAY
     Route: 048
     Dates: start: 20110523, end: 20110627
  11. LORAZEPAM [Interacting]
     Active Substance: LORAZEPAM
     Dosage: 1 MG
     Route: 048
     Dates: start: 20110725
  12. MIRTAZAPINE [Interacting]
     Active Substance: MIRTAZAPINE
     Dosage: 30 MG, ONCE PER DAY
     Route: 048
     Dates: start: 20101007, end: 20101012
  13. MIRTAZAPINE [Interacting]
     Active Substance: MIRTAZAPINE
     Dosage: 30MG IN THE DAY AND 15MG AT NIGHT
     Route: 065
     Dates: start: 20110224, end: 20110506
  14. MIRTAZAPINE [Interacting]
     Active Substance: MIRTAZAPINE
     Dosage: 15 MG, 2 TIMES PER DAY
     Route: 048
     Dates: start: 20100923, end: 20101108
  15. MIRTAZAPINE [Interacting]
     Active Substance: MIRTAZAPINE
     Dosage: 30 MG, ONCE PER DAY
     Route: 048
  16. MIRTAZAPINE [Interacting]
     Active Substance: MIRTAZAPINE
     Dosage: UNSURE
     Route: 048
     Dates: start: 20100923, end: 20101108
  17. MIRTAZAPINE [Interacting]
     Active Substance: MIRTAZAPINE
     Dosage: 30MG IN THE DAY AND 15MG AT NIGHT
     Route: 065
     Dates: start: 20110224, end: 20110506
  18. QUETIAPINE FUMARATE [Interacting]
     Active Substance: QUETIAPINE FUMARATE
     Dosage: UNK
  19. QUETIAPINE FUMARATE [Interacting]
     Active Substance: QUETIAPINE FUMARATE
     Dosage: 300 MG, UNK
     Route: 048
     Dates: start: 20110224, end: 20110506
  20. QUETIAPINE FUMARATE [Interacting]
     Active Substance: QUETIAPINE FUMARATE
     Dosage: UNK
     Route: 048
     Dates: start: 19990801, end: 20110706
  21. QUETIAPINE FUMARATE [Interacting]
     Active Substance: QUETIAPINE FUMARATE
     Dosage: UNK
  22. OMEPRAZOLE [Interacting]
     Active Substance: OMEPRAZOLE
     Indication: Dyspepsia
     Dosage: 20 MG, 1X/DAY
     Route: 048
     Dates: start: 20110525
  23. OMEPRAZOLE [Interacting]
     Active Substance: OMEPRAZOLE
     Dosage: 20 MG, 1X/DAY
     Route: 048
  24. PAROXETINE HYDROCHLORIDE [Interacting]
     Active Substance: PAROXETINE HYDROCHLORIDE
     Dosage: 40 MG, ONCE PER DAY
     Route: 048
  25. PAROXETINE HYDROCHLORIDE [Interacting]
     Active Substance: PAROXETINE HYDROCHLORIDE
     Dosage: INTERRUPTED
     Route: 048
     Dates: start: 201105, end: 20110706
  26. PAROXETINE HYDROCHLORIDE [Interacting]
     Active Substance: PAROXETINE HYDROCHLORIDE
     Dosage: 20 MG, 3 TIMES PER DAY (NTERRUPTED)
     Route: 048
     Dates: start: 19990801, end: 201105
  27. PAROXETINE HYDROCHLORIDE [Interacting]
     Active Substance: PAROXETINE HYDROCHLORIDE
     Dosage: 60 MG, ONCE PER DAY (20 MG, THREE TIMES PER DAY)
     Route: 048
     Dates: start: 19990801, end: 201105
  28. PAROXETINE HYDROCHLORIDE [Interacting]
     Active Substance: PAROXETINE HYDROCHLORIDE
     Dosage: UNK
     Route: 048
     Dates: start: 201012
  29. PAROXETINE HYDROCHLORIDE [Interacting]
     Active Substance: PAROXETINE HYDROCHLORIDE
     Dosage: INTERRUPTED
     Route: 048
     Dates: start: 1997
  30. PAROXETINE HYDROCHLORIDE [Interacting]
     Active Substance: PAROXETINE HYDROCHLORIDE
     Dosage: 20 MG, 2X/DAY
     Route: 048
     Dates: start: 2011, end: 20110706
  31. PAROXETINE HYDROCHLORIDE [Interacting]
     Active Substance: PAROXETINE HYDROCHLORIDE
     Dosage: INTERRUPTED
     Route: 048
     Dates: start: 200812, end: 201012
  32. PAROXETINE HYDROCHLORIDE [Interacting]
     Active Substance: PAROXETINE HYDROCHLORIDE
     Dosage: INTERRUPTED
     Route: 048
     Dates: start: 1997, end: 201105
  33. PAROXETINE HYDROCHLORIDE [Interacting]
     Active Substance: PAROXETINE HYDROCHLORIDE
     Dosage: UNK
     Route: 048
     Dates: start: 1999
  34. AMITRIPTYLINE HYDROCHLORIDE [Interacting]
     Active Substance: AMITRIPTYLINE HYDROCHLORIDE
     Indication: Muscle spasms
     Dosage: 25 MG, ONCE PER DAY (25 MG AT NIGHT)
     Route: 065
     Dates: start: 20110810
  35. AMITRIPTYLINE HYDROCHLORIDE [Interacting]
     Active Substance: AMITRIPTYLINE HYDROCHLORIDE
     Indication: Serotonin syndrome
     Dosage: AT NIGHT
     Route: 065
  36. AMITRIPTYLINE HYDROCHLORIDE [Interacting]
     Active Substance: AMITRIPTYLINE HYDROCHLORIDE
     Indication: Drug withdrawal syndrome
     Dosage: AT NIGHT
     Route: 065
  37. AMITRIPTYLINE HYDROCHLORIDE [Interacting]
     Active Substance: AMITRIPTYLINE HYDROCHLORIDE
     Indication: Neuralgia
     Dosage: UNK
  38. CLONAZEPAM [Interacting]
     Active Substance: CLONAZEPAM
     Indication: Sedation
     Dosage: (UNSURE)
     Route: 048
     Dates: start: 20110224, end: 20110410
  39. CLONAZEPAM [Interacting]
     Active Substance: CLONAZEPAM
     Dosage: UNK, UNK (UNSURE)
     Route: 048
     Dates: end: 20110410
  40. CODEINE PHOSPHATE [Interacting]
     Active Substance: CODEINE PHOSPHATE
     Indication: Serotonin syndrome
     Dosage: UNK
     Dates: start: 20110224, end: 20110410
  41. CODEINE PHOSPHATE [Interacting]
     Active Substance: CODEINE PHOSPHATE
     Indication: Analgesic therapy
     Dosage: UNK
     Route: 048
     Dates: start: 2008, end: 2008
  42. CODEINE PHOSPHATE [Interacting]
     Active Substance: CODEINE PHOSPHATE
     Dosage: UNK
     Route: 048
     Dates: start: 2002, end: 2002
  43. CODEINE PHOSPHATE [Interacting]
     Active Substance: CODEINE PHOSPHATE
     Dosage: 24-EVERY HOUR
     Route: 048
     Dates: start: 20110615, end: 20110723
  44. CODEINE PHOSPHATE [Interacting]
     Active Substance: CODEINE PHOSPHATE
     Dosage: 15 MG
     Route: 048
     Dates: start: 20110615, end: 20110723
  45. CODEINE PHOSPHATE [Interacting]
     Active Substance: CODEINE PHOSPHATE
     Dosage: 30 MG
     Route: 048
     Dates: start: 20110615, end: 20110723
  46. CODEINE PHOSPHATE [Interacting]
     Active Substance: CODEINE PHOSPHATE
     Dosage: UNK
  47. DIAZEPAM [Interacting]
     Active Substance: DIAZEPAM
     Indication: Serotonin syndrome
     Dosage: 5 MG, 4X/DAY
     Route: 065
     Dates: start: 20110725
  48. DIAZEPAM [Interacting]
     Active Substance: DIAZEPAM
     Indication: Depression
     Dosage: 20 MG, 4X/DAY (5 MG QDS AND NOW ON 2-2-4 MG)
     Route: 048
     Dates: start: 20110725, end: 20110725
  49. DIAZEPAM [Interacting]
     Active Substance: DIAZEPAM
     Indication: Muscle spasms
     Dosage: 8 MG, ONCE PER DAY
     Route: 065
     Dates: start: 20110725
  50. DIAZEPAM [Interacting]
     Active Substance: DIAZEPAM
     Dosage: 8 MG (EVERY 24 HOURS)
     Route: 048
  51. DOMPERIDONE [Interacting]
     Active Substance: DOMPERIDONE
     Dosage: UNK
  52. PHOSPHORUS [Interacting]
     Active Substance: PHOSPHORUS
     Dosage: UNK
  53. PROCYCLIDINE HYDROCHLORIDE [Interacting]
     Active Substance: PROCYCLIDINE HYDROCHLORIDE
     Indication: Extrapyramidal disorder
     Dosage: 20 MG
     Route: 048
     Dates: start: 20110324, end: 20110506
  54. PROCYCLIDINE HYDROCHLORIDE [Interacting]
     Active Substance: PROCYCLIDINE HYDROCHLORIDE
     Indication: Oculogyric crisis
     Dosage: 5 MG, ONCE PER DAY
     Route: 048
     Dates: start: 20110503, end: 20110510
  55. PROCYCLIDINE HYDROCHLORIDE [Interacting]
     Active Substance: PROCYCLIDINE HYDROCHLORIDE
     Dosage: 15 MG, ONCE PER DAY
     Route: 048
     Dates: start: 20110503, end: 20110510
  56. PROCYCLIDINE HYDROCHLORIDE [Interacting]
     Active Substance: PROCYCLIDINE HYDROCHLORIDE
     Dosage: 5 MG, 3X/DAY
     Dates: start: 20110503, end: 20110510
  57. PROCYCLIDINE HYDROCHLORIDE [Interacting]
     Active Substance: PROCYCLIDINE HYDROCHLORIDE
     Dosage: 1ST TRIMESTER
     Route: 065
     Dates: start: 20110415
  58. PROCYCLIDINE HYDROCHLORIDE [Interacting]
     Active Substance: PROCYCLIDINE HYDROCHLORIDE
     Dosage: UNK
     Route: 065
     Dates: start: 20110415
  59. TRAMADOL HYDROCHLORIDE [Interacting]
     Active Substance: TRAMADOL HYDROCHLORIDE
     Indication: Neck pain
     Dosage: 1 DOSAGE FORM, UNK
     Route: 065
     Dates: start: 20110725
  60. TRAMADOL HYDROCHLORIDE [Interacting]
     Active Substance: TRAMADOL HYDROCHLORIDE
     Indication: Analgesic therapy
     Dosage: 20 MG
     Route: 065
     Dates: start: 20110725
  61. TRAMADOL HYDROCHLORIDE [Interacting]
     Active Substance: TRAMADOL HYDROCHLORIDE
     Indication: Back pain
     Dosage: 4 DOSAGE FORM, UNK
     Route: 048
  62. TRAMADOL HYDROCHLORIDE [Interacting]
     Active Substance: TRAMADOL HYDROCHLORIDE
     Dosage: 4 MG, 1X/DAY
     Route: 048
     Dates: start: 20081201, end: 20101201
  63. TRAMADOL HYDROCHLORIDE [Interacting]
     Active Substance: TRAMADOL HYDROCHLORIDE
     Dosage: 5 MG, UNK
     Route: 044
     Dates: start: 1995, end: 1996
  64. TRAMADOL HYDROCHLORIDE [Interacting]
     Active Substance: TRAMADOL HYDROCHLORIDE
     Dosage: UNSPECIFIED, 50-100, 4 CYCLICAL
     Route: 048
     Dates: start: 20080722
  65. TRAMADOL HYDROCHLORIDE [Interacting]
     Active Substance: TRAMADOL HYDROCHLORIDE
     Dosage: UNK, DAILY
     Route: 048
     Dates: start: 20080722
  66. TRAMADOL HYDROCHLORIDE [Interacting]
     Active Substance: TRAMADOL HYDROCHLORIDE
     Dosage: DISCONTINUED AFTER 4 OR 5 DAYS
     Route: 048
     Dates: start: 20081201, end: 20101210
  67. TRAMADOL HYDROCHLORIDE [Interacting]
     Active Substance: TRAMADOL HYDROCHLORIDE
     Dosage: 4 CYCLICAL, DAILY
     Route: 048
     Dates: start: 20080722
  68. TRAMADOL HYDROCHLORIDE [Interacting]
     Active Substance: TRAMADOL HYDROCHLORIDE
     Dosage: UNK
     Dates: start: 2008, end: 2009
  69. TRAMADOL HYDROCHLORIDE [Interacting]
     Active Substance: TRAMADOL HYDROCHLORIDE
     Dosage: 8 MG, UNK
     Route: 065
     Dates: start: 20110725
  70. TRAMADOL HYDROCHLORIDE [Interacting]
     Active Substance: TRAMADOL HYDROCHLORIDE
     Dosage: 4
     Route: 048
     Dates: start: 20080722
  71. TRAMADOL HYDROCHLORIDE [Interacting]
     Active Substance: TRAMADOL HYDROCHLORIDE
     Dosage: UNK
     Route: 048
     Dates: start: 20081201, end: 20101201

REACTIONS (73)
  - Neuroleptic malignant syndrome [Unknown]
  - Delirium [Unknown]
  - Serotonin syndrome [Not Recovered/Not Resolved]
  - Suicidal ideation [Not Recovered/Not Resolved]
  - Schizophrenia [Unknown]
  - Seizure [Unknown]
  - Paralysis [Unknown]
  - Dystonia [Unknown]
  - Paralysis [Unknown]
  - Hallucinations, mixed [Unknown]
  - H1N1 influenza [Unknown]
  - Exposure during pregnancy [Unknown]
  - Maternal exposure during pregnancy [Unknown]
  - Drug ineffective [Unknown]
  - Restlessness [Unknown]
  - Vomiting [Unknown]
  - Hyperhidrosis [Unknown]
  - Pyrexia [Unknown]
  - Disorientation [Not Recovered/Not Resolved]
  - Muscle spasms [Not Recovered/Not Resolved]
  - Skin discolouration [Not Recovered/Not Resolved]
  - Arthralgia [Unknown]
  - Paraesthesia [Unknown]
  - Menstrual disorder [Unknown]
  - Dissociation [Not Recovered/Not Resolved]
  - Dyskinesia [Unknown]
  - Pruritus [Unknown]
  - Psychotic disorder [Recovered/Resolved]
  - Parosmia [Unknown]
  - Tachycardia [Unknown]
  - Diarrhoea [Unknown]
  - Incontinence [Not Recovered/Not Resolved]
  - Swelling face [Unknown]
  - Vision blurred [Unknown]
  - Hypoaesthesia [Not Recovered/Not Resolved]
  - Gastric pH decreased [Unknown]
  - Dizziness [Unknown]
  - Heart rate increased [Unknown]
  - Cyanosis [Unknown]
  - Sensory loss [Unknown]
  - Balance disorder [Unknown]
  - Drooling [Unknown]
  - Cogwheel rigidity [Unknown]
  - Tinnitus [Unknown]
  - Gait disturbance [Unknown]
  - Mydriasis [Unknown]
  - Pallor [Unknown]
  - Fatigue [Not Recovered/Not Resolved]
  - Illness [Unknown]
  - Speech disorder [Unknown]
  - Swollen tongue [Unknown]
  - Feeling of body temperature change [Unknown]
  - Muscle rigidity [Unknown]
  - Nightmare [Unknown]
  - Musculoskeletal stiffness [Not Recovered/Not Resolved]
  - Hypoaesthesia oral [Unknown]
  - Toxicity to various agents [Unknown]
  - Aphasia [Not Recovered/Not Resolved]
  - Drug withdrawal syndrome [Unknown]
  - Drug interaction [Unknown]
  - Muscle disorder [Unknown]
  - Therapeutic product ineffective [Unknown]
  - Cyanosis [Unknown]
  - Eye pain [Unknown]
  - Premature labour [Unknown]
  - Contusion [Unknown]
  - Post-traumatic stress disorder [Unknown]
  - Psychotic disorder [Unknown]
  - Extrapyramidal disorder [Unknown]
  - Condition aggravated [Unknown]
  - Electric shock sensation [Unknown]
  - Speech disorder [Unknown]
  - Acid base balance abnormal [Unknown]

NARRATIVE: CASE EVENT DATE: 20100101
